FAERS Safety Report 5097783-7 (Version None)
Quarter: 2006Q3

REPORT INFORMATION
  Report Type: 
  Country: None (occurrence: None)
  Receive Date: 20060824
  Receipt Date: 20060808
  Transmission Date: 20061208
  Serious: Yes (Hospitalization)
  Sender: FDA-Public Use
  Company Number: WAES 0608USA01787

PATIENT
  Age: 84 Year
  Sex: Female
  Weight: 69.8539 kg

DRUGS (7)
  1. ZOCOR [Suspect]
     Dosage: 20 MG/DAILY/PO
     Route: 048
  2. AROMASIN [Suspect]
     Indication: BREAST CANCER FEMALE
     Dosage: 25 MG/DAILY/PO
     Route: 048
     Dates: start: 20050526
  3. PREVACID [Concomitant]
  4. PRINIVIL [Concomitant]
  5. TOPROL-XL [Concomitant]
  6. ASPIRIN [Concomitant]
  7. VITAMINS [Concomitant]

REACTIONS (1)
  - MYOCARDIAL INFARCTION [None]
